FAERS Safety Report 21009985 (Version 1)
Quarter: 2022Q2

REPORT INFORMATION
  Report Type: Spontaneous
  Country: US (occurrence: US)
  Receive Date: 20220627
  Receipt Date: 20220627
  Transmission Date: 20220721
  Serious: No
  Sender: FDA-Public Use
  Company Number: US-DENDREON PHARMACEUTICAL LLC-2021DEN000316

PATIENT
  Age: 63 Year
  Sex: Male

DRUGS (7)
  1. PROVENGE [Suspect]
     Active Substance: SIPULEUCEL-T
     Indication: Prostate cancer metastatic
     Dosage: DOSE 1
     Route: 042
     Dates: start: 20211022, end: 20211022
  2. LUPRON [Concomitant]
     Active Substance: LEUPROLIDE ACETATE
  3. METOPROLOL [Concomitant]
     Active Substance: METOPROLOL
  4. LOSARTAN [Concomitant]
     Active Substance: LOSARTAN
  5. COLCHICINE [Concomitant]
     Active Substance: COLCHICINE
  6. ALLOPURINOL [Concomitant]
     Active Substance: ALLOPURINOL
  7. HYDROCODONE [Concomitant]
     Active Substance: HYDROCODONE
     Indication: Prostate cancer metastatic

REACTIONS (1)
  - Abdominal discomfort [Recovered/Resolved]

NARRATIVE: CASE EVENT DATE: 20211026
